FAERS Safety Report 5847683-7 (Version None)
Quarter: 2008Q3

REPORT INFORMATION
  Report Type: 
  Country: None (occurrence: None)
  Receive Date: 20080814
  Receipt Date: 20080804
  Transmission Date: 20090109
  Serious: Yes (Death)
  Sender: FDA-Public Use
  Company Number: 1000000430

PATIENT
  Age: 87 Year
  Sex: Female

DRUGS (9)
  1. ESCITALOPRAM OXALATE [Suspect]
     Indication: DEPRESSION
     Dosage: 1 DOSAGE FORMS (1 DOSAGE FORMS, 1 IN 1 D), ORAL
     Route: 048
     Dates: end: 20080716
  2. KARDEGIC (75 MILLIGRAM, PREPARATION FOR ORAL USE (NOS)) [Suspect]
     Indication: TRANSIENT ISCHAEMIC ATTACK
     Dosage: 75 MG, (75MG, 1 IN 1 D), ORAL
     Route: 048
     Dates: end: 20080716
  3. TERCIAN [Concomitant]
  4. PRAZEPAM [Concomitant]
  5. ZOLPIDEM [Concomitant]
  6. LEVOTHYROX [Concomitant]
  7. ACEBUTOLOL [Concomitant]
  8. COLPOTROPHINE [Concomitant]
  9. DIPROSONE (CREAM) [Concomitant]

REACTIONS (5)
  - BRAIN SCAN ABNORMAL [None]
  - CEREBRAL HAEMORRHAGE [None]
  - COMA [None]
  - LOSS OF CONSCIOUSNESS [None]
  - MYDRIASIS [None]
